FAERS Safety Report 15772337 (Version 2)
Quarter: 2018Q4

REPORT INFORMATION
  Report Type: Spontaneous
  Country: US (occurrence: US)
  Receive Date: 20181228
  Receipt Date: 20181231
  Transmission Date: 20190205
  Serious: No
  Sender: FDA-Public Use
  Company Number: US-PFIZER INC-2018531156

PATIENT
  Age: 80 Year
  Sex: Female
  Weight: 56.69 kg

DRUGS (3)
  1. DIAZEPAM. [Suspect]
     Active Substance: DIAZEPAM
     Dosage: 130 MG TO 140 MG, DAILY (26 5MG PILLS PER DAY)
  2. ALDACTONE [Suspect]
     Active Substance: SPIRONOLACTONE
     Indication: STIFF PERSON SYNDROME
     Dosage: DAILY (TAKING BETWEEN 12.5 AND 25MG OF ALDACTONE PER DAY)
  3. DIAZEPAM. [Suspect]
     Active Substance: DIAZEPAM
     Indication: ANXIETY
     Dosage: 2.5 MG, UNK

REACTIONS (2)
  - Drug ineffective [Unknown]
  - Insomnia [Unknown]
